FAERS Safety Report 4858802-3 (Version None)
Quarter: 2005Q4

REPORT INFORMATION
  Report Type: 
  Country: None (occurrence: None)
  Receive Date: 20051219
  Receipt Date: 20051102
  Transmission Date: 20060501
  Serious: No
  Sender: FDA-Public Use
  Company Number: US-GLAXOSMITHKLINE-A0580572A

PATIENT
  Age: 45 Year
  Sex: Female

DRUGS (8)
  1. MEMBERS MARK NTS ORIGINAL, 21MG [Suspect]
     Dates: start: 20051101
  2. CLONAZEPAM [Concomitant]
     Indication: PANIC DISORDER
  3. OXYCONTIN [Concomitant]
     Indication: PAIN
  4. SOMA [Concomitant]
  5. KEFLEX [Concomitant]
  6. CYMBALTA [Concomitant]
     Indication: DEPRESSION
  7. AMITRIPTYLINE HCL [Concomitant]
  8. TEMAZEPAM [Concomitant]

REACTIONS (1)
  - NICOTINE DEPENDENCE [None]
